FAERS Safety Report 8364101-8 (Version None)
Quarter: 2012Q2

REPORT INFORMATION
  Report Type: 
  Country: None (occurrence: None)
  Receive Date: 20120516
  Receipt Date: 20120511
  Transmission Date: 20120825
  Serious: Yes (Death)
  Sender: FDA-Public Use
  Company Number: US-NAPPMUNDI-USA-2012-0081449

PATIENT
  Sex: Male

DRUGS (3)
  1. OXYCONTIN [Suspect]
     Indication: PRODUCT USED FOR UNKNOWN INDICATION
  2. BUTRANS [Suspect]
     Indication: PRODUCT USED FOR UNKNOWN INDICATION
     Route: 062
  3. BENZODIAZEPINE DERIVATIVES [Suspect]
     Indication: PRODUCT USED FOR UNKNOWN INDICATION

REACTIONS (2)
  - PNEUMONIA [None]
  - MULTIPLE DRUG OVERDOSE [None]
